FAERS Safety Report 4887077-4 (Version None)
Quarter: 2006Q1

REPORT INFORMATION
  Report Type: 
  Country: None (occurrence: None)
  Receive Date: 20060120
  Receipt Date: 20051004
  Transmission Date: 20060701
  Serious: Yes (Hospitalization)
  Sender: FDA-Public Use
  Company Number: US-MERCK-0510USA03864

PATIENT
  Age: 62 Year
  Sex: Female
  Weight: 114 kg

DRUGS (3)
  1. VIOXX [Suspect]
     Indication: BACK PAIN
     Route: 048
     Dates: start: 19991119, end: 20040930
  2. METOPROLOL [Concomitant]
     Indication: CARDIAC DISORDER
     Route: 065
     Dates: start: 19900101
  3. FOLIC ACID [Concomitant]
     Indication: BREAST CANCER
     Route: 065
     Dates: start: 19900101, end: 19990101

REACTIONS (13)
  - ANAEMIA [None]
  - ANXIETY [None]
  - ARTHRALGIA [None]
  - BLOOD CHOLESTEROL INCREASED [None]
  - CORONARY ARTERY DISEASE [None]
  - GASTRITIS [None]
  - GASTROENTERITIS VIRAL [None]
  - HIATUS HERNIA [None]
  - HYPERTENSION [None]
  - MYOCARDIAL INFARCTION [None]
  - PEPTIC ULCER [None]
  - SINUS BRADYCARDIA [None]
  - VENTRICULAR EXTRASYSTOLES [None]
